FAERS Safety Report 9810862 (Version 4)
Quarter: 2015Q3

REPORT INFORMATION
  Report Type: Spontaneous
  Country: US (occurrence: US)
  Receive Date: 20140110
  Receipt Date: 20150728
  Transmission Date: 20151125
  Serious: Yes (Other)
  Sender: FDA-Public Use
  Company Number: US-SANOFI-AVENTIS-2013SA003727

PATIENT
  Age: 53 Year
  Sex: Male

DRUGS (8)
  1. PLAVIX [Suspect]
     Active Substance: CLOPIDOGREL BISULFATE
     Indication: ACUTE CORONARY SYNDROME
     Route: 048
  2. PLAVIX [Suspect]
     Active Substance: CLOPIDOGREL BISULFATE
     Indication: STENT PLACEMENT
     Route: 048
  3. PLAVIX [Suspect]
     Active Substance: CLOPIDOGREL BISULFATE
     Indication: ACUTE CORONARY SYNDROME
     Route: 048
     Dates: start: 20011112
  4. ASPIRIN. [Concomitant]
     Active Substance: ASPIRIN
     Dates: start: 2008
  5. PLAVIX [Suspect]
     Active Substance: CLOPIDOGREL BISULFATE
     Indication: STENT PLACEMENT
     Route: 048
     Dates: start: 20011112
  6. PLAVIX [Suspect]
     Active Substance: CLOPIDOGREL BISULFATE
     Indication: ACUTE CORONARY SYNDROME
     Route: 048
     Dates: start: 20111115, end: 20141201
  7. PLAVIX [Suspect]
     Active Substance: CLOPIDOGREL BISULFATE
     Indication: STENT PLACEMENT
     Route: 048
     Dates: start: 20111115, end: 20141201
  8. ASPIRIN. [Concomitant]
     Active Substance: ASPIRIN
     Dates: start: 20011112, end: 2008

REACTIONS (2)
  - Multiple injuries [Unknown]
  - Thrombotic thrombocytopenic purpura [Unknown]

NARRATIVE: CASE EVENT DATE: 201008
